FAERS Safety Report 18940835 (Version 2)
Quarter: 2021Q1

REPORT INFORMATION
  Report Type: Spontaneous
  Country: GR (occurrence: GR)
  Receive Date: 20210225
  Receipt Date: 20210304
  Transmission Date: 20210420
  Serious: Yes (Other)
  Sender: FDA-Public Use
  Company Number: GR-TEVA-2021-GR-1884261

PATIENT
  Age: 43 Year
  Sex: Male

DRUGS (2)
  1. METHYLPREDNISOLONE. [Suspect]
     Active Substance: METHYLPREDNISOLONE
     Indication: IGA NEPHROPATHY
     Dosage: 8MG DAILY
     Route: 065
  2. MYCOPHENOLATE ACID [Suspect]
     Active Substance: MYCOPHENOLIC ACID
     Indication: IGA NEPHROPATHY
     Route: 065

REACTIONS (4)
  - Leishmaniasis [Unknown]
  - B-lymphocyte count decreased [Recovering/Resolving]
  - Haemophagocytic lymphohistiocytosis [Unknown]
  - Blood immunoglobulin G decreased [Recovering/Resolving]
